FAERS Safety Report 8567684-8 (Version None)
Quarter: 2012Q3

REPORT INFORMATION
  Report Type: 
  Country: None (occurrence: None)
  Receive Date: 20120803
  Receipt Date: 20120723
  Transmission Date: 20120928
  Serious: Yes (Other)
  Sender: FDA-Public Use
  Company Number: US-ELI_LILLY_AND_COMPANY-US201207007331

PATIENT
  Age: 77 Year
  Sex: Female

DRUGS (3)
  1. CYMBALTA [Suspect]
     Indication: BACK PAIN
     Dosage: 30 MG, UNKNOWN
     Dates: start: 20120625, end: 20120702
  2. CYMBALTA [Suspect]
     Dosage: 60 MG, UNKNOWN
     Dates: start: 20120702, end: 20120720
  3. CYMBALTA [Suspect]
     Dosage: 30 MG, UNKNOWN
     Dates: start: 20120720

REACTIONS (3)
  - BLOOD CHLORIDE DECREASED [None]
  - FATIGUE [None]
  - HYPONATRAEMIA [None]
